FAERS Safety Report 10701721 (Version 1)
Quarter: 2015Q1

REPORT INFORMATION
  Report Type: Spontaneous
  Country: US (occurrence: US)
  Receive Date: 20150109
  Receipt Date: 20150109
  Transmission Date: 20150721
  Serious: Yes (Hospitalization, Other)
  Sender: FDA-Public Use
  Company Number: US-ELI_LILLY_AND_COMPANY-US201412010158

PATIENT
  Age: 74 Year
  Sex: Male

DRUGS (1)
  1. HUMALOG [Suspect]
     Active Substance: INSULIN LISPRO
     Indication: TYPE 2 DIABETES MELLITUS
     Route: 065

REACTIONS (9)
  - Prostate cancer [Unknown]
  - Crohn^s disease [Unknown]
  - Fall [Unknown]
  - Mantle cell lymphoma [Unknown]
  - Blood potassium decreased [Unknown]
  - Incorrect dose administered [Unknown]
  - Myalgia [Unknown]
  - Blood glucose increased [Recovering/Resolving]
  - Memory impairment [Unknown]

NARRATIVE: CASE EVENT DATE: 201209
